FAERS Safety Report 6618739-6 (Version None)
Quarter: 2010Q1

REPORT INFORMATION
  Report Type: 
  Country: None (occurrence: None)
  Receive Date: 20100308
  Receipt Date: 20100223
  Transmission Date: 20100710
  Serious: Yes (Hospitalization)
  Sender: FDA-Public Use
  Company Number: ES-ELI_LILLY_AND_COMPANY-ES201002006252

PATIENT
  Age: 62 Year
  Sex: Female

DRUGS (3)
  1. FORTEO [Suspect]
     Indication: OSTEOPOROSIS
     Dosage: 20 UG, DAILY (1/D)
     Route: 058
     Dates: start: 20091201, end: 20100217
  2. ANTIHYPERTENSIVES [Concomitant]
     Indication: HYPERTENSION
     Dosage: UNK, UNKNOWN
     Route: 065
  3. DRUG USED IN DIABETES [Concomitant]
     Indication: DIABETES MELLITUS
     Dosage: UNK, UNKNOWN
     Route: 065

REACTIONS (1)
  - RESPIRATORY FAILURE [None]
